FAERS Safety Report 15551109 (Version 1)
Quarter: 2018Q4

REPORT INFORMATION
  Report Type: Spontaneous
  Country: US (occurrence: US)
  Receive Date: 20181022
  Receipt Date: 20181022
  Transmission Date: 20190205
  Serious: No
  Sender: FDA-Public Use
  Company Number: None

PATIENT
  Age: 75 Year
  Sex: Male
  Weight: 82 kg

DRUGS (1)
  1. VORICONAZOLE. [Suspect]
     Active Substance: VORICONAZOLE
     Indication: FUNGAL INFECTION
     Dates: start: 20180703, end: 20180724

REACTIONS (3)
  - Mental status changes [None]
  - Hepatic enzyme increased [None]
  - Liver function test increased [None]

NARRATIVE: CASE EVENT DATE: 20180726
